FAERS Safety Report 5595507-8 (Version None)
Quarter: 2008Q1

REPORT INFORMATION
  Report Type: 
  Country: None (occurrence: None)
  Receive Date: 20080118
  Receipt Date: 20080110
  Transmission Date: 20080703
  Serious: Yes (Other)
  Sender: FDA-Public Use
  Company Number: NL-JNJFOC-20080103149

PATIENT
  Sex: Female
  Weight: 58 kg

DRUGS (4)
  1. RISPERIDONE [Suspect]
  2. RISPERIDONE [Suspect]
     Indication: PSYCHOTIC DISORDER
  3. OXAZEPAM [Concomitant]
  4. TRUXAL [Concomitant]

REACTIONS (5)
  - ANXIETY [None]
  - FLAT AFFECT [None]
  - HYPERPROLACTINAEMIA [None]
  - LIBIDO DECREASED [None]
  - WEIGHT INCREASED [None]
